FAERS Safety Report 4781894-7 (Version None)
Quarter: 2005Q3

REPORT INFORMATION
  Report Type: 
  Country: None (occurrence: None)
  Receive Date: 20050927
  Receipt Date: 20050914
  Transmission Date: 20060218
  Serious: Yes (Hospitalization)
  Sender: FDA-Public Use
  Company Number: 2005131391

PATIENT
  Age: 60 Year
  Sex: Female

DRUGS (11)
  1. ZOLOFT [Suspect]
     Indication: ILL-DEFINED DISORDER
  2. NEURONTIN [Suspect]
     Indication: ILL-DEFINED DISORDER
  3. CETUXIMAB (CETUXIMAB) [Suspect]
     Indication: COLON CANCER STAGE III
     Dosage: (400 MG/M2), INTRAVENOUS
     Route: 042
     Dates: start: 20050411, end: 20050411
  4. OXALIPLATIN (OXALIPLATIN) [Suspect]
     Indication: COLON CANCER STAGE III
     Dosage: (50 MG/M2), INTRAVENOUS
     Route: 042
     Dates: start: 20050809, end: 20050809
  5. LEUCOVORIN CALCIUM [Suspect]
     Indication: COLON CANCER STAGE III
     Dosage: (400 MG/M2), INTRAVENOUS
     Route: 042
     Dates: start: 20050809, end: 20050809
  6. FLUOROURACIL [Suspect]
     Indication: COLON CANCER STAGE III
     Dosage: 2400 MG/M2), INTRAVENOUS
     Route: 042
     Dates: start: 20050809, end: 20050809
  7. PROTONIX [Suspect]
     Indication: ILL-DEFINED DISORDER
  8. VALTREX [Suspect]
     Indication: ILL-DEFINED DISORDER
  9. WELLBUTRIN [Suspect]
     Indication: ILL-DEFINED DISORDER
  10. ATIVAN [Concomitant]
  11. COMPAZINE [Concomitant]

REACTIONS (4)
  - HAEMATOCHEZIA [None]
  - HAEMOGLOBIN DECREASED [None]
  - HAEMORRHOIDS [None]
  - PLATELET COUNT DECREASED [None]
